FAERS Safety Report 24228645 (Version 1)
Quarter: 2024Q3

REPORT INFORMATION
  Report Type: Spontaneous
  Country: US (occurrence: None)
  Receive Date: 20240819
  Receipt Date: 20240819
  Transmission Date: 20241017
  Serious: Yes (Life-Threatening, Hospitalization)
  Sender: Public
  Company Number: None

PATIENT
  Age: 94 Year
  Sex: Female
  Weight: 60.75 kg

DRUGS (5)
  1. KENALOG [Suspect]
     Active Substance: TRIAMCINOLONE ACETONIDE
     Indication: Osteoarthritis
     Dosage: 1 INJECTION  EPIDURAL
     Route: 008
     Dates: start: 20240814, end: 20240814
  2. MAGNESIUM OXIDE [Concomitant]
     Active Substance: MAGNESIUM OXIDE
  3. POTASSIUM CHLORIDE [Concomitant]
     Active Substance: POTASSIUM CHLORIDE
  4. NM-6603 [Concomitant]
     Active Substance: NM-6603
  5. SENOKOT [Concomitant]
     Active Substance: SENNOSIDES

REACTIONS (6)
  - Blood glucose increased [None]
  - Dizziness [None]
  - Fatigue [None]
  - Confusional state [None]
  - Sensory disturbance [None]
  - Blood potassium increased [None]

NARRATIVE: CASE EVENT DATE: 20240814
